FAERS Safety Report 10755945 (Version 3)
Quarter: 2016Q3

REPORT INFORMATION
  Report Type: Report from Study
  Country: US (occurrence: US)
  Receive Date: 20150202
  Receipt Date: 20160721
  Transmission Date: 20161109
  Serious: Yes (Hospitalization, Other)
  Sender: FDA-Public Use
  Company Number: US-SA-2014SA118448

PATIENT
  Age: 49 Year
  Sex: Female

DRUGS (2)
  1. AUBAGIO [Suspect]
     Active Substance: TERIFLUNOMIDE
     Indication: MULTIPLE SCLEROSIS
     Route: 048
  2. AUBAGIO [Suspect]
     Active Substance: TERIFLUNOMIDE
     Indication: MULTIPLE SCLEROSIS
     Route: 048
     Dates: start: 20140827

REACTIONS (11)
  - Influenza [Recovered/Resolved]
  - Fatigue [Unknown]
  - Diplopia [Recovered/Resolved]
  - Urinary tract infection [Unknown]
  - Urinary retention [Unknown]
  - Skin disorder [Unknown]
  - Migraine [Recovering/Resolving]
  - Paraesthesia [Not Recovered/Not Resolved]
  - Micturition urgency [Unknown]
  - Dysuria [Unknown]
  - Hypoaesthesia [Not Recovered/Not Resolved]

NARRATIVE: CASE EVENT DATE: 201408
